FAERS Safety Report 6590608-X (Version None)
Quarter: 2010Q1

REPORT INFORMATION
  Report Type: 
  Country: None (occurrence: None)
  Receive Date: 20100219
  Receipt Date: 20100211
  Transmission Date: 20100710
  Serious: Yes (Other)
  Sender: FDA-Public Use
  Company Number: A0809170A

PATIENT
  Sex: Female

DRUGS (3)
  1. TYKERB [Suspect]
     Indication: BREAST CANCER
     Dosage: 1250MG PER DAY
     Route: 048
     Dates: start: 20090914
  2. XELODA [Suspect]
     Route: 065
     Dates: start: 20080101
  3. OTHER MEDICATIONS [Concomitant]

REACTIONS (15)
  - ACTIVITIES OF DAILY LIVING IMPAIRED [None]
  - ARTERIOSCLEROSIS [None]
  - ASPARTATE AMINOTRANSFERASE INCREASED [None]
  - BLOOD CHLORIDE DECREASED [None]
  - BLOOD SODIUM DECREASED [None]
  - CONVULSION [None]
  - DYSPEPSIA [None]
  - FATIGUE [None]
  - HEPATIC CYST [None]
  - ILL-DEFINED DISORDER [None]
  - MEAN CELL HAEMOGLOBIN INCREASED [None]
  - MUSCLE SPASMS [None]
  - PALMAR-PLANTAR ERYTHRODYSAESTHESIA SYNDROME [None]
  - RED CELL DISTRIBUTION WIDTH INCREASED [None]
  - SCIATICA [None]
